FAERS Safety Report 18343352 (Version 1)
Quarter: 2020Q4

REPORT INFORMATION
  Report Type: Spontaneous
  Country: US (occurrence: US)
  Receive Date: 20201002
  Receipt Date: 20201002
  Transmission Date: 20210113
  Serious: Yes (Hospitalization)
  Sender: FDA-Public Use
  Company Number: None

PATIENT
  Sex: Female

DRUGS (5)
  1. TADALAFIL 20MG TAB [Suspect]
     Active Substance: TADALAFIL
     Dates: start: 20200117
  2. SILDENAFIL. [Concomitant]
     Active Substance: SILDENAFIL
  3. FUROSEMIDE. [Concomitant]
     Active Substance: FUROSEMIDE
  4. OMEPRAZOLE. [Concomitant]
     Active Substance: OMEPRAZOLE
  5. GLANFACINE [Concomitant]

REACTIONS (1)
  - Sepsis [None]
